FAERS Safety Report 23970795 (Version 1)
Quarter: 2024Q2

REPORT INFORMATION
  Report Type: Spontaneous
  Country: JP (occurrence: None)
  Receive Date: 20240613
  Receipt Date: 20240613
  Transmission Date: 20240716
  Serious: Yes (Hospitalization)
  Sender: FDA-Public Use
  Company Number: JP-NATCOUSA-2024-NATCOUSA-000208

PATIENT
  Age: 55 Year
  Sex: Female
  Weight: 56 kg

DRUGS (5)
  1. NITROGLYCERIN [Suspect]
     Active Substance: NITROGLYCERIN
     Indication: Prinzmetal angina
     Dosage: 0.5 MG/H
     Route: 042
  2. BENIDIPINE [Suspect]
     Active Substance: BENIDIPINE
     Indication: Prinzmetal angina
     Dosage: 16 MG/DAY
     Route: 042
  3. NIFEDIPINE [Suspect]
     Active Substance: NIFEDIPINE
     Indication: Prinzmetal angina
     Dosage: 40 MG/DAY
     Route: 042
  4. DILTIAZEM [Suspect]
     Active Substance: DILTIAZEM
     Indication: Prinzmetal angina
     Dosage: 200 MG/DAY
     Route: 042
  5. NICORANDIL [Suspect]
     Active Substance: NICORANDIL
     Indication: Prinzmetal angina
     Dosage: 15 MG/DAY
     Route: 042

REACTIONS (1)
  - Drug ineffective for unapproved indication [Unknown]
